FAERS Safety Report 5053789-5 (Version None)
Quarter: 2006Q3

REPORT INFORMATION
  Report Type: 
  Country: None (occurrence: None)
  Receive Date: 20060718
  Receipt Date: 20060627
  Transmission Date: 20061208
  Serious: Yes (Hospitalization)
  Sender: FDA-Public Use
  Company Number: TR-AVENTIS-200617245GDDC

PATIENT
  Age: 22 Year
  Sex: Female
  Weight: 69.1 kg

DRUGS (3)
  1. INSULIN GLARGINE [Suspect]
     Indication: DIABETES MELLITUS INSULIN-DEPENDENT
     Dosage: DOSE UNIT: UNITS
     Route: 058
  2. OPTIPEN (INSULIN PUMP) [Suspect]
     Indication: DIABETES MELLITUS INSULIN-DEPENDENT
     Dates: start: 20040405
  3. HUMALOG [Concomitant]
     Indication: DIABETES MELLITUS INSULIN-DEPENDENT
     Route: 058
     Dates: start: 20011004

REACTIONS (1)
  - DIABETIC KETOACIDOSIS [None]
